FAERS Safety Report 20001189 (Version 4)
Quarter: 2023Q2

REPORT INFORMATION
  Report Type: Report from Study
  Country: US (occurrence: US)
  Receive Date: 20211027
  Receipt Date: 20230510
  Transmission Date: 20230722
  Serious: Yes (Hospitalization)
  Sender: FDA-Public Use
  Company Number: US-NOVARTISTESTPH-NVSC2021US243710

PATIENT
  Sex: Female
  Weight: 72.562 kg

DRUGS (5)
  1. TREPROSTINIL [Suspect]
     Active Substance: TREPROSTINIL
     Indication: Pulmonary arterial hypertension
     Dosage: 54.5 NG/KG/MIN, CONT
     Route: 058
     Dates: start: 20210714
  2. TREPROSTINIL [Suspect]
     Active Substance: TREPROSTINIL
     Dosage: 54.5 NG/KG/MIN, CONT
     Route: 058
  3. TREPROSTINIL [Suspect]
     Active Substance: TREPROSTINIL
     Dosage: 54.5 NG/KG/MIN, CONT
     Route: 058
  4. AMBRISENTAN [Concomitant]
     Active Substance: AMBRISENTAN
     Indication: Product used for unknown indication
     Dosage: UNK
     Route: 065
  5. REVATIO [Concomitant]
     Active Substance: SILDENAFIL CITRATE
     Indication: Product used for unknown indication
     Dosage: UNK
     Route: 065

REACTIONS (5)
  - Pneumonia [Unknown]
  - Sepsis [Unknown]
  - Urinary tract infection [Unknown]
  - Laryngitis [Not Recovered/Not Resolved]
  - Infusion site pain [Unknown]
